FAERS Safety Report 7167726-0 (Version None)
Quarter: 2010Q4

REPORT INFORMATION
  Report Type: 
  Country: None (occurrence: None)
  Receive Date: 20101216
  Receipt Date: 20100907
  Transmission Date: 20110411
  Serious: No
  Sender: FDA-Public Use
  Company Number: A0879824A

PATIENT
  Age: 54 Year
  Sex: Female

DRUGS (4)
  1. COMMIT [Suspect]
  2. NICOTINE POLACRILEX [Suspect]
  3. NICOTINE POLACRILEX [Suspect]
  4. COMMIT [Suspect]

REACTIONS (4)
  - DIARRHOEA [None]
  - FLATULENCE [None]
  - INTENTIONAL DRUG MISUSE [None]
  - NICOTINE DEPENDENCE [None]
